FAERS Safety Report 24581202 (Version 8)
Quarter: 2025Q2

REPORT INFORMATION
  Report Type: Spontaneous
  Country: US (occurrence: US)
  Receive Date: 20241105
  Receipt Date: 20250521
  Transmission Date: 20250716
  Serious: Yes (Hospitalization)
  Sender: IPSEN BIOPHARMACEUTICALS, INC.
  Company Number: US-IPSEN Group, Research and Development-2024-22214

PATIENT
  Age: 86 Year
  Sex: Female
  Weight: 68.49 kg

DRUGS (36)
  1. TAZVERIK [Suspect]
     Active Substance: TAZEMETOSTAT HYDROBROMIDE
     Indication: Follicular lymphoma
     Dosage: 800 MG TWICE DAILY
     Route: 048
     Dates: start: 20241028
  2. TAZVERIK [Suspect]
     Active Substance: TAZEMETOSTAT HYDROBROMIDE
     Route: 048
     Dates: start: 20241107
  3. ATORVASTATIN CALCIUM [Concomitant]
     Active Substance: ATORVASTATIN CALCIUM
     Dosage: 1 TAB ORAL DAILY (100 TABS) 3 REFILLS
     Route: 048
  4. ATORVASTATIN CALCIUM [Concomitant]
     Active Substance: ATORVASTATIN CALCIUM
     Route: 048
  5. PANTOPRAZOLE SODIUM [Concomitant]
     Active Substance: PANTOPRAZOLE SODIUM
     Dosage: 1 TABLET ORAL DAILY (30 TABS)
     Route: 048
  6. PANTOPRAZOLE SODIUM [Concomitant]
     Active Substance: PANTOPRAZOLE SODIUM
     Route: 048
  7. FAMOTIDINE [Concomitant]
     Active Substance: FAMOTIDINE
     Dosage: 1 TABLET ORAL TWICE DAILY BY MOUTH
     Route: 048
  8. VANCOMYCIN HYDROCHLORIDE [Concomitant]
     Active Substance: VANCOMYCIN HYDROCHLORIDE
     Route: 048
  9. VANCOMYCIN HYDROCHLORIDE [Concomitant]
     Active Substance: VANCOMYCIN HYDROCHLORIDE
     Route: 048
  10. LACTOBACILLUS ACIDOPHILUS [Concomitant]
     Active Substance: LACTOBACILLUS ACIDOPHILUS
     Dosage: 1 CAP, ORAL, DAILY (30 CAP)
     Route: 048
  11. DIETARY SUPPLEMENT [Concomitant]
     Active Substance: DIETARY SUPPLEMENT
     Dosage: 1 CAP, ORAL, DAILY
     Route: 048
  12. CHOLECALCIFEROL [Concomitant]
     Active Substance: CHOLECALCIFEROL
     Dosage: CHOLECALCIFEROL 25 MCG (1000 INTL UNITS), 1 CAP, ORAL, DAILY, 3 REFILLS
     Route: 048
  13. SYMBICORT [Concomitant]
     Active Substance: BUDESONIDE\FORMOTEROL FUMARATE DIHYDRATE
     Dosage: 1 PUFF INHALED, BID?INHALATION AEROSOL 160-4.5 MCG/ACT
     Route: 048
  14. OMEGA-3 POLYUNSATURATED FATTY ACID [Concomitant]
     Dosage: 1 TABLET ORAL, DAILY
     Route: 048
  15. ZINC [Concomitant]
     Active Substance: ZINC
     Dosage: 1 TABLET ORAL, DAILY?220 (50 ZN) MG
     Route: 048
  16. COREG [Concomitant]
     Active Substance: CARVEDILOL
     Dosage: 1 TABLET ORAL, BID (180 TABS)
     Route: 048
  17. COREG [Concomitant]
     Active Substance: CARVEDILOL
     Route: 048
  18. ALLEGRA ALLERGY [Concomitant]
     Active Substance: FEXOFENADINE HYDROCHLORIDE
     Dosage: 1 TABLET ORAL, DAILY 90 TABS (ALLEGRA 60 MG), 3 REFILLS
     Route: 048
  19. ALLEGRA ALLERGY [Concomitant]
     Active Substance: FEXOFENADINE HYDROCHLORIDE
     Route: 048
  20. SINGULAIR [Concomitant]
     Active Substance: MONTELUKAST SODIUM
     Indication: Hypersensitivity
     Dosage: 1 TABLET ORAL, DAILY 90 TABS
     Route: 048
  21. ONDANSETRON [Concomitant]
     Active Substance: ONDANSETRON
     Indication: Nausea
     Dosage: 1 TABLET ORAL (60 TABS), TID, PRN
     Route: 048
     Dates: start: 20241029
  22. ONDANSETRON [Concomitant]
     Active Substance: ONDANSETRON
     Indication: Vomiting
     Route: 042
     Dates: start: 20240814, end: 20240905
  23. TYLENOL [Concomitant]
     Active Substance: ACETAMINOPHEN
     Indication: Arthralgia
     Dosage: 12 MG/KG/DOSE 500 MG ORAL, EVERY 4 HOURS, PRN (NOT TO EXCEED 5 DOSE PER DAY)
     Route: 048
  24. TYLENOL [Concomitant]
     Active Substance: ACETAMINOPHEN
     Route: 048
     Dates: start: 20240814, end: 20240904
  25. TYLENOL [Concomitant]
     Active Substance: ACETAMINOPHEN
     Dates: start: 20241029
  26. MEPERIDINE [Concomitant]
     Active Substance: MEPERIDINE
     Route: 042
     Dates: start: 20240814, end: 20240905
  27. DIPHENHYDRAMINE [Concomitant]
     Active Substance: DIPHENHYDRAMINE
     Route: 048
     Dates: start: 20240814, end: 20240904
  28. SODIUM CHLORIDE [Concomitant]
     Active Substance: SODIUM CHLORIDE
     Route: 042
  29. SODIUM CHLORIDE [Concomitant]
     Active Substance: SODIUM CHLORIDE
     Dates: start: 20240814, end: 20240904
  30. TRUXIMA [Concomitant]
     Active Substance: RITUXIMAB-ABBS
     Route: 042
     Dates: start: 20240814, end: 20240904
  31. FENTANYL [Concomitant]
     Active Substance: FENTANYL
     Route: 042
     Dates: start: 20241029
  32. ELIQUIS [Concomitant]
     Active Substance: APIXABAN
     Route: 048
  33. IMODIUM A-D [Concomitant]
     Active Substance: LOPERAMIDE HYDROCHLORIDE
     Route: 048
     Dates: start: 20250313
  34. LOSARTAN POTASSIUM [Concomitant]
     Active Substance: LOSARTAN POTASSIUM
     Route: 048
  35. VITAMIN D [Concomitant]
     Active Substance: VITAMIN D NOS
     Route: 048
  36. VITAMIN B3 [Concomitant]
     Active Substance: NIACIN
     Route: 048

REACTIONS (18)
  - Renal disorder [Recovering/Resolving]
  - Gastric infection [Recovering/Resolving]
  - Dizziness [Recovering/Resolving]
  - Asthenia [Recovering/Resolving]
  - Fall [Recovering/Resolving]
  - Wrist fracture [Recovering/Resolving]
  - Eye contusion [Recovering/Resolving]
  - Nausea [Recovering/Resolving]
  - Initial insomnia [Not Recovered/Not Resolved]
  - Asthenia [Recovering/Resolving]
  - Tremor [Unknown]
  - Vomiting [Recovering/Resolving]
  - Retching [Not Recovered/Not Resolved]
  - Multiple allergies [Not Recovered/Not Resolved]
  - Dizziness [Recovering/Resolving]
  - Dehydration [Recovering/Resolving]
  - Abdominal discomfort [Unknown]
  - Product dose omission issue [Unknown]

NARRATIVE: CASE EVENT DATE: 20241029
